FAERS Safety Report 8890578 (Version 1)
Quarter: 2012Q4

REPORT INFORMATION
  Report Type: Report from Study
  Country: GB (occurrence: GB)
  Receive Date: 20121107
  Receipt Date: 20121107
  Transmission Date: 20130627
  Serious: Yes (Death, Hospitalization, Other)
  Sender: FDA-Public Use
  Company Number: GB-ROCHE-1152497

PATIENT
  Age: 75 Year
  Sex: Male

DRUGS (14)
  1. RANIBIZUMAB [Suspect]
     Indication: AGE-RELATED MACULAR DEGENERATION
     Route: 050
     Dates: start: 20110509
  2. RANIBIZUMAB [Suspect]
     Route: 050
     Dates: start: 20120630
  3. FUROSEMIDE [Concomitant]
     Route: 065
     Dates: start: 20040127, end: 20120709
  4. TIOTROPIUM [Concomitant]
     Route: 065
     Dates: end: 20120709
  5. LEVOTHYROXINE [Concomitant]
     Route: 065
     Dates: start: 20050118, end: 20120709
  6. RAMIPRIL [Concomitant]
     Route: 065
     Dates: start: 20040127, end: 20120709
  7. METFORMIN [Concomitant]
     Route: 065
     Dates: start: 2000, end: 20120709
  8. IRBESARTAN [Concomitant]
     Route: 065
     Dates: start: 20040127, end: 20120709
  9. BISOPROLOL [Concomitant]
     Route: 065
     Dates: start: 20040127, end: 20120709
  10. ATORVASTATIN [Concomitant]
     Route: 065
     Dates: start: 20040127, end: 20120709
  11. ASPIRIN [Concomitant]
     Route: 065
     Dates: start: 20040127, end: 20120709
  12. AMLODIPINE [Concomitant]
     Route: 065
     Dates: start: 20040127, end: 20120709
  13. NOVORAPID [Concomitant]
     Route: 065
     Dates: start: 2000, end: 20120709
  14. SALBUTAMOL [Concomitant]

REACTIONS (8)
  - Confusional state [Fatal]
  - Pyrexia [Fatal]
  - Brain stem syndrome [Unknown]
  - Meningitis [Unknown]
  - Mastoid disorder [Unknown]
  - Headache [Unknown]
  - Encephalitis [Unknown]
  - Pneumonia streptococcal [Unknown]
